FAERS Safety Report 15964424 (Version 2)
Quarter: 2019Q1

REPORT INFORMATION
  Report Type: Spontaneous
  Country: US (occurrence: US)
  Receive Date: 20190215
  Receipt Date: 20190225
  Transmission Date: 20190417
  Serious: Yes (Life-Threatening, Hospitalization, Other)
  Sender: FDA-Public Use
  Company Number: US-AUROBINDO-AUR-APL-2018-053633

PATIENT

DRUGS (2)
  1. PARACETAMOL [Concomitant]
     Active Substance: ACETAMINOPHEN
     Indication: ILL-DEFINED DISORDER
     Dosage: UNK
     Route: 065
  2. FLUOXETINE [Suspect]
     Active Substance: FLUOXETINE HYDROCHLORIDE
     Indication: DEPRESSION
     Dosage: 20 MILLIGRAM, DAILY
     Route: 048

REACTIONS (7)
  - Alanine aminotransferase increased [Recovering/Resolving]
  - Low density lipoprotein [Unknown]
  - Rash [Recovering/Resolving]
  - Stevens-Johnson syndrome [Recovering/Resolving]
  - Drug-induced liver injury [Recovering/Resolving]
  - Jaundice [Unknown]
  - Aspartate aminotransferase increased [Recovering/Resolving]
